FAERS Safety Report 11719247 (Version 1)
Quarter: 2015Q4

REPORT INFORMATION
  Report Type: Spontaneous
  Country: US (occurrence: None)
  Receive Date: 20151109
  Receipt Date: 20151109
  Transmission Date: 20160304
  Serious: Yes (Hospitalization, Disabling)
  Sender: FDA-Public Use
  Company Number: None

PATIENT
  Age: 76 Year
  Sex: Female
  Weight: 72.58 kg

DRUGS (3)
  1. LOVASTATIN. [Suspect]
     Active Substance: LOVASTATIN
     Indication: BLOOD CHOLESTEROL INCREASED
     Dosage: 1
     Route: 048
     Dates: start: 20150617, end: 20150915
  2. BLOOD PRESSURE MED [Concomitant]
     Dosage: 1 ONCE DAILY TAKEN BY MOUTH
     Route: 048
     Dates: start: 20150617, end: 20150915
  3. COENZYME Q10 [Concomitant]
     Active Substance: UBIDECARENONE

REACTIONS (6)
  - Hypoaesthesia [None]
  - Abasia [None]
  - Myopathy [None]
  - Pain [None]
  - Dysstasia [None]
  - Paraesthesia [None]

NARRATIVE: CASE EVENT DATE: 20150616
